FAERS Safety Report 8360899-3 (Version None)
Quarter: 2012Q2

REPORT INFORMATION
  Report Type: 
  Country: None (occurrence: None)
  Receive Date: 20120515
  Receipt Date: 20120507
  Transmission Date: 20120825
  Serious: Yes (Other)
  Sender: FDA-Public Use
  Company Number: US-BRISTOL-MYERS SQUIBB COMPANY-16545444

PATIENT
  Age: 52 Year
  Sex: Female

DRUGS (2)
  1. ORENCIA [Suspect]
     Indication: RHEUMATOID ARTHRITIS
     Dosage: LAST INF ON 11JAN OR 12JAN12 1H58545 JL14,1G64566 JUN14,1F67196 MAY14,1F67196 MAY14,1E64350 MAR14
     Route: 042
     Dates: start: 20110817, end: 20120111
  2. DICLOFENAC SODIUM [Suspect]

REACTIONS (1)
  - HEPATITIS [None]
